FAERS Safety Report 15163591 (Version 2)
Quarter: 2019Q1

REPORT INFORMATION
  Report Type: Report from Study
  Country: CA (occurrence: CA)
  Receive Date: 20180719
  Receipt Date: 20190110
  Transmission Date: 20190417
  Serious: Yes (Hospitalization)
  Sender: FDA-Public Use
  Company Number: CA-ROCHE-2154653

PATIENT
  Age: 67 Year
  Sex: Male
  Weight: 82.3 kg

DRUGS (13)
  1. GEMCITABINE [Suspect]
     Active Substance: GEMCITABINE\GEMCITABINE HYDROCHLORIDE
     Indication: BLADDER CANCER
     Dosage: LAST DOSE PRIOR TO SAE 18/JUN/2018, PATINENT HAD TO RECEIVE TOTAL DOSE OF 4 DOSES 28/MAY/218. 04/JUN
     Route: 042
     Dates: start: 20180528
  2. SILDENAFIL. [Concomitant]
     Active Substance: SILDENAFIL
     Dosage: PRN, DAILY
     Route: 065
  3. FLOMAX [Concomitant]
     Active Substance: TAMSULOSIN HYDROCHLORIDE
     Dosage: 0.4MG HALF STRENGTH
     Route: 065
     Dates: start: 20180614
  4. STATEX (CANADA) [Concomitant]
     Active Substance: MORPHINE SULFATE
     Dosage: DAILY
     Route: 065
  5. PANTOLOC [Concomitant]
     Active Substance: PANTOPRAZOLE SODIUM
     Route: 065
     Dates: start: 20180809
  6. ULTIBRO BREEZHALER [Concomitant]
     Active Substance: GLYCOPYRRONIUM\INDACATEROL
     Dosage: 50-110 MCG
     Route: 065
     Dates: start: 2014
  7. KADIAN [Concomitant]
     Active Substance: MORPHINE SULFATE
     Route: 065
     Dates: start: 1984
  8. CORTIFOAM [Concomitant]
     Active Substance: HYDROCORTISONE ACETATE
     Route: 065
     Dates: start: 201806
  9. BRICANYL [Concomitant]
     Active Substance: TERBUTALINE SULFATE
     Dosage: INHALATION QID PRN
     Route: 065
     Dates: start: 2014
  10. ATEZOLIZUMAB. [Suspect]
     Active Substance: ATEZOLIZUMAB
     Indication: BLADDER CANCER
     Dosage: LAST DOSE : 18/JUN/2018. PATIENT DID NOT SHOW UP FOR CYCLE 3
     Route: 042
     Dates: start: 20180528
  11. CITALOPRAM [Concomitant]
     Active Substance: CITALOPRAM HYDROBROMIDE
     Dosage: HALF STRENGHT
     Route: 065
     Dates: start: 2015
  12. ROSUVASTATIN. [Concomitant]
     Active Substance: ROSUVASTATIN
     Route: 065
  13. LOPERAMIDE [Concomitant]
     Active Substance: LOPERAMIDE
     Route: 065
     Dates: start: 20180609

REACTIONS (4)
  - Proctitis [Recovered/Resolved with Sequelae]
  - Abdominal pain [Recovering/Resolving]
  - Intestinal obstruction [Recovered/Resolved]
  - Diarrhoea [Recovering/Resolving]

NARRATIVE: CASE EVENT DATE: 20180627
